FAERS Safety Report 18550433 (Version 1)
Quarter: 2020Q4

REPORT INFORMATION
  Report Type: Spontaneous
  Country: FR (occurrence: FR)
  Receive Date: 20201126
  Receipt Date: 20201126
  Transmission Date: 20210114
  Serious: Yes (Hospitalization)
  Sender: FDA-Public Use
  Company Number: FR-TEVA-2020-FR-1851735

PATIENT
  Age: 45 Year
  Sex: Female
  Weight: 61.5 kg

DRUGS (1)
  1. TRAMADOL BASE [Suspect]
     Active Substance: TRAMADOL
     Indication: FIBROMYALGIA
     Dosage: 100MILLIGRAM
     Route: 048
     Dates: start: 20200910, end: 20200926

REACTIONS (2)
  - Sphincter of Oddi dysfunction [Recovered/Resolved]
  - Pancreatitis [Recovered/Resolved]

NARRATIVE: CASE EVENT DATE: 20200926
